FAERS Safety Report 8252132-8 (Version None)
Quarter: 2012Q2

REPORT INFORMATION
  Report Type: 
  Country: None (occurrence: None)
  Receive Date: 20120402
  Receipt Date: 20120122
  Transmission Date: 20120825
  Serious: No
  Sender: FDA-Public Use
  Company Number: US-ABBOTT-11P-163-0804305-00

PATIENT
  Sex: Male
  Weight: 118.04 kg

DRUGS (4)
  1. ANDROGEL [Suspect]
     Route: 062
     Dates: start: 20111130
  2. ANDROGEL [Suspect]
     Indication: BLOOD TESTOSTERONE DECREASED
     Route: 062
     Dates: start: 20101001, end: 20111130
  3. AMLODIPINE BESYLATE [Concomitant]
     Indication: HYPERTENSION
     Dosage: DAILY DOSE:  UNKNOWN
     Route: 065
  4. LOSARTAN POTASSIUM [Concomitant]
     Indication: HYPERTENSION
     Dosage: DAILY DOSE:  UNKNOWN
     Route: 065

REACTIONS (3)
  - MUSCULOSKELETAL DISCOMFORT [None]
  - BLOOD TESTOSTERONE DECREASED [None]
  - WEIGHT INCREASED [None]
